FAERS Safety Report 9895648 (Version 2)
Quarter: 2014Q1

REPORT INFORMATION
  Report Type: Spontaneous
  Country: US (occurrence: US)
  Receive Date: 20140213
  Receipt Date: 20140213
  Transmission Date: 20141002
  Serious: No
  Sender: FDA-Public Use
  Company Number: US-BRISTOL-MYERS SQUIBB COMPANY-18732958

PATIENT
  Age: 52 Year
  Sex: Female

DRUGS (2)
  1. ABATACEPT SUBQ INJECTION 125MG/ML [Suspect]
     Indication: RHEUMATOID ARTHRITIS
     Dosage: FIRST DOSE-15MAR13:LAST DOSE:15-APR-2013
     Route: 058
     Dates: start: 20130315
  2. PREDNISONE [Concomitant]

REACTIONS (1)
  - Drug ineffective [Unknown]
